FAERS Safety Report 5618783-1 (Version None)
Quarter: 2008Q1

REPORT INFORMATION
  Report Type: 
  Country: None (occurrence: None)
  Receive Date: 20080207
  Receipt Date: 20080201
  Transmission Date: 20080703
  Serious: Yes (Hospitalization)
  Sender: FDA-Public Use
  Company Number: US-BRISTOL-MYERS SQUIBB COMPANY-14050645

PATIENT
  Age: 62 Year
  Sex: Female

DRUGS (4)
  1. ABATACEPT [Suspect]
     Indication: SYSTEMIC LUPUS ERYTHEMATOSUS
     Route: 042
     Dates: start: 20051223
  2. LASIX [Concomitant]
     Dates: start: 19980101
  3. COUMADIN [Concomitant]
     Dates: start: 19980101
  4. ATENOLOL [Concomitant]
     Route: 048
     Dates: start: 19980101

REACTIONS (1)
  - CARDIAC FAILURE CONGESTIVE [None]
